FAERS Safety Report 18662223 (Version 10)
Quarter: 2025Q1

REPORT INFORMATION
  Report Type: Report from Study
  Country: ES (occurrence: ES)
  Receive Date: 20201224
  Receipt Date: 20250103
  Transmission Date: 20250409
  Serious: Yes (Death, Other)
  Sender: JOHNSON AND JOHNSON
  Company Number: ES-JNJFOC-20201232334

PATIENT

DRUGS (3)
  1. TREMFYA [Suspect]
     Active Substance: GUSELKUMAB
     Indication: Psoriasis
     Route: 065
  2. TREMFYA [Suspect]
     Active Substance: GUSELKUMAB
  3. TREMFYA [Suspect]
     Active Substance: GUSELKUMAB

REACTIONS (83)
  - Death [Fatal]
  - Erythrodermic psoriasis [Unknown]
  - Gastroenteritis [Unknown]
  - Lung adenocarcinoma [Unknown]
  - COVID-19 pneumonia [Unknown]
  - Coronavirus infection [Unknown]
  - Pneumonia [Unknown]
  - Pneumonia viral [Unknown]
  - Neoplasm malignant [Unknown]
  - Prostate cancer [Unknown]
  - Vascular operation [Unknown]
  - Septic shock [Unknown]
  - Pyelonephritis acute [Unknown]
  - Pancreatitis acute [Unknown]
  - Acute respiratory failure [Unknown]
  - Type 2 diabetes mellitus [Unknown]
  - Hand dermatitis [Unknown]
  - Hip fracture [Unknown]
  - Obesity [Unknown]
  - Appendicitis [Unknown]
  - Clostridium difficile colitis [Unknown]
  - Pericardial effusion [Unknown]
  - Pilonidal sinus repair [Unknown]
  - Peritonitis bacterial [Unknown]
  - COVID-19 [Unknown]
  - Neurosurgery [Unknown]
  - Dizziness [Unknown]
  - Head injury [Unknown]
  - Cardiac failure congestive [Unknown]
  - Eczema [Unknown]
  - Cerebral haematoma [Unknown]
  - Knee arthroplasty [Unknown]
  - Basal cell carcinoma [Unknown]
  - Squamous cell carcinoma of skin [Unknown]
  - Diabetic ketoacidosis [Unknown]
  - Dermatitis atopic [Unknown]
  - Intervertebral disc protrusion [Unknown]
  - Lentigo maligna [Unknown]
  - Encephalitis herpes [Unknown]
  - Neoplasm [Unknown]
  - Pancreatic neoplasm [Unknown]
  - Pneumonia pneumococcal [Unknown]
  - Hepatic enzyme increased [Unknown]
  - Adenocarcinoma [Unknown]
  - Transitional cell carcinoma [Unknown]
  - Breast cancer [Unknown]
  - Diabetic metabolic decompensation [Unknown]
  - Acute pulmonary oedema [Unknown]
  - Pulmonary embolism [Unknown]
  - Ischaemic stroke [Unknown]
  - Suicidal ideation [Unknown]
  - Acute myocardial infarction [Unknown]
  - Rheumatic fever [Unknown]
  - Leg amputation [Unknown]
  - Liver transplant [Unknown]
  - Sjogren^s syndrome [Unknown]
  - Eventration repair [Unknown]
  - Nephrectomy [Unknown]
  - Craniectomy [Unknown]
  - Graves^ disease [Unknown]
  - Bacteraemia [Unknown]
  - Infection [Unknown]
  - Administration site reaction [Unknown]
  - Skin disorder [Unknown]
  - Gastrointestinal disorder [Unknown]
  - Nervous system disorder [Unknown]
  - Musculoskeletal disorder [Unknown]
  - Respiratory disorder [Unknown]
  - Angiopathy [Unknown]
  - Cardiac disorder [Unknown]
  - Skin lesion [Unknown]
  - Renal disorder [Unknown]
  - Immune system disorder [Unknown]
  - Metabolic disorder [Unknown]
  - Inner ear disorder [Unknown]
  - Herpes zoster [Unknown]
  - Exposure during pregnancy [Unknown]
  - Prostatic adenoma [Unknown]
  - Atrial flutter [Unknown]
  - Urinary tract infection [Unknown]
  - Pancreatic mass [Unknown]
  - Peripheral ischaemia [Unknown]
  - Drug ineffective [Unknown]
